FAERS Safety Report 7952756-9 (Version None)
Quarter: 2011Q4

REPORT INFORMATION
  Report Type: 
  Country: None (occurrence: None)
  Receive Date: 20111201
  Receipt Date: 20111125
  Transmission Date: 20120403
  Serious: Yes (Life-Threatening, Hospitalization)
  Sender: FDA-Public Use
  Company Number: US-BAYER-2011-069276

PATIENT
  Age: 28 Year
  Sex: Female
  Weight: 56.689 kg

DRUGS (3)
  1. METHYLPREDNISOLONE [Concomitant]
  2. YAZ [Suspect]
     Dosage: UNK
     Dates: start: 20080813, end: 20081015
  3. ANTIBIOTICS [Concomitant]

REACTIONS (7)
  - THROMBOSIS [None]
  - GENERAL PHYSICAL HEALTH DETERIORATION [None]
  - INJURY [None]
  - PULMONARY EMBOLISM [None]
  - PAIN [None]
  - INTERNAL INJURY [None]
  - EMOTIONAL DISTRESS [None]
